FAERS Safety Report 13178096 (Version 1)
Quarter: 2017Q1

REPORT INFORMATION
  Report Type: Spontaneous
  Country: US (occurrence: US)
  Receive Date: 20170201
  Receipt Date: 20170201
  Transmission Date: 20170428
  Serious: No
  Sender: FDA-Public Use
  Company Number: None

PATIENT
  Age: 72 Day
  Sex: Male
  Weight: 76.3 kg

DRUGS (2)
  1. CEFEPIME [Suspect]
     Active Substance: CEFEPIME HYDROCHLORIDE
     Indication: UPPER RESPIRATORY TRACT INFECTION
     Route: 042
     Dates: start: 20170118, end: 20170122
  2. CEFEPIME [Suspect]
     Active Substance: CEFEPIME HYDROCHLORIDE
     Indication: PNEUMONIA
     Route: 042
     Dates: start: 20170118, end: 20170122

REACTIONS (4)
  - Somnolence [None]
  - Myoclonus [None]
  - Neurotoxicity [None]
  - Incorrect dose administered [None]

NARRATIVE: CASE EVENT DATE: 20170124
